FAERS Safety Report 5338057-6 (Version None)
Quarter: 2007Q2

REPORT INFORMATION
  Report Type: 
  Country: None (occurrence: None)
  Receive Date: 20070530
  Receipt Date: 20070521
  Transmission Date: 20071010
  Serious: Yes (Hospitalization, Other)
  Sender: FDA-Public Use
  Company Number: PHEH2007US05475

PATIENT
  Age: 76 Year
  Sex: Male

DRUGS (11)
  1. SANDOSTATIN [Suspect]
     Indication: CARCINOID SYNDROME
     Dosage: 0.3 ML, BID
  2. SANDOSTATIN [Suspect]
     Dosage: 0.4 ML, BID
  3. SANDOSTATIN [Suspect]
     Dosage: 0.5 ML, BID
     Dates: start: 20070201
  4. SANDOSTATIN LAR [Suspect]
     Indication: CARCINOID SYNDROME
     Dosage: 60 MG IM Q4WEEKS
     Route: 030
     Dates: start: 20050125
  5. SANDOSTATIN LAR [Suspect]
     Dosage: 60 MG IM Q3WEEKS
     Route: 030
  6. COUMADIN [Concomitant]
     Indication: ATRIAL FIBRILLATION
     Dosage: 2.5 MG, QD
     Route: 048
     Dates: start: 20060101
  7. TOPROL-XL [Concomitant]
     Indication: HYPERTENSION
     Dosage: 25 MG, QD
     Route: 048
     Dates: start: 20060101
  8. DIGITEK [Concomitant]
     Indication: ATRIAL FIBRILLATION
     Dosage: 0.25 MG, QD
     Route: 048
     Dates: start: 20060101
  9. LIPITOR [Concomitant]
     Indication: HYPERLIPIDAEMIA
     Dosage: 20 MG, QD
     Route: 048
     Dates: start: 20050101
  10. LISINOPRIL [Concomitant]
     Dosage: 10 MG, QD
     Route: 048
     Dates: start: 20060101
  11. SYNTHROID [Concomitant]
     Indication: HYPOTHYROIDISM
     Dosage: 0.175 MG, QD
     Route: 048
     Dates: start: 20050101

REACTIONS (10)
  - CONDITION AGGRAVATED [None]
  - DEHYDRATION [None]
  - DIARRHOEA [None]
  - DISCOMFORT [None]
  - DIZZINESS [None]
  - DRUG INEFFECTIVE [None]
  - FLUSHING [None]
  - MALIGNANT NEOPLASM PROGRESSION [None]
  - SURGERY [None]
  - SYNCOPE [None]
